FAERS Safety Report 6192727-9 (Version None)
Quarter: 2009Q2

REPORT INFORMATION
  Report Type: 
  Country: None (occurrence: None)
  Receive Date: 20090518
  Receipt Date: 20090506
  Transmission Date: 20091009
  Serious: Yes (Hospitalization)
  Sender: FDA-Public Use
  Company Number: US-AMGEN-TCS346056

PATIENT
  Sex: Male

DRUGS (1)
  1. ENBREL [Suspect]
     Indication: RHEUMATOID ARTHRITIS
     Route: 058
     Dates: start: 20011001

REACTIONS (4)
  - CONFUSIONAL STATE [None]
  - CYSTITIS [None]
  - DRUG HYPERSENSITIVITY [None]
  - UPPER RESPIRATORY TRACT INFECTION [None]
